FAERS Safety Report 5779756-1 (Version None)
Quarter: 2008Q2

REPORT INFORMATION
  Report Type: 
  Country: None (occurrence: None)
  Receive Date: 20080617
  Receipt Date: 20080610
  Transmission Date: 20081010
  Serious: Yes (Life-Threatening, Hospitalization)
  Sender: FDA-Public Use
  Company Number: 2008SP011440

PATIENT
  Age: 63 Year
  Sex: Male

DRUGS (2)
  1. TEMOZOLOMIDE [Suspect]
     Indication: METASTATIC MALIGNANT MELANOMA
     Dosage: 270 MG; PO
     Route: 048
     Dates: start: 20080514, end: 20080603
  2. BEVACIZUMAB (BEVACIZUMAB) [Suspect]
     Indication: METASTATIC MALIGNANT MELANOMA
     Dosage: 700 MG; IV
     Route: 042
     Dates: start: 20080514, end: 20080528

REACTIONS (3)
  - HAEMATURIA [None]
  - NEUTROPENIA [None]
  - THROMBOCYTOPENIA [None]
